FAERS Safety Report 5152095-8 (Version None)
Quarter: 2006Q4

REPORT INFORMATION
  Report Type: 
  Country: None (occurrence: None)
  Receive Date: 20061116
  Receipt Date: 20061108
  Transmission Date: 20070319
  Serious: Yes (Hospitalization)
  Sender: FDA-Public Use
  Company Number: 2006PK02333

PATIENT
  Age: 87 Year
  Sex: Female

DRUGS (10)
  1. SEROQUEL [Suspect]
     Route: 048
     Dates: start: 20060628, end: 20060628
  2. SEROQUEL [Suspect]
     Route: 048
     Dates: start: 20060629
  3. SEROQUEL [Suspect]
     Route: 048
     Dates: start: 20060703, end: 20060704
  4. ZYPREXA [Concomitant]
     Route: 048
     Dates: start: 20050414, end: 20060627
  5. ZYPREXA [Concomitant]
     Route: 048
     Dates: start: 20060628
  6. JATROSOM N [Concomitant]
     Route: 048
     Dates: start: 20050406, end: 20060323
  7. JATROSOM N [Concomitant]
     Route: 048
     Dates: start: 20060324, end: 20060404
  8. JATROSOM N [Concomitant]
     Route: 048
     Dates: start: 20060405, end: 20060411
  9. JATROSOM N [Concomitant]
     Route: 048
     Dates: start: 20060412, end: 20060620
  10. JATROSOM N [Concomitant]
     Route: 048
     Dates: start: 20060621

REACTIONS (1)
  - DERMATITIS ALLERGIC [None]
